FAERS Safety Report 9156159 (Version 1)
Quarter: 2013Q1

REPORT INFORMATION
  Report Type: Spontaneous
  Country: FR (occurrence: FR)
  Receive Date: 20130311
  Receipt Date: 20130311
  Transmission Date: 20140127
  Serious: Yes (Hospitalization)
  Sender: FDA-Public Use
  Company Number: FR-B.I. PHARMACEUTICALS,INC./RIDGEFIELD-2013-FF-00653FF

PATIENT
  Age: 27 Year
  Sex: Female

DRUGS (4)
  1. PRADAXA [Suspect]
     Indication: DILATATION ATRIAL
     Dosage: 300 MG
     Route: 048
     Dates: start: 201302
  2. LASILIX [Concomitant]
  3. ACE INHIBITOR [Concomitant]
  4. BETA BLOCKING AGENT [Concomitant]

REACTIONS (3)
  - Haematuria [Recovered/Resolved]
  - Haematuria [Not Recovered/Not Resolved]
  - Urinary tract infection [Unknown]
